FAERS Safety Report 5964117-2 (Version None)
Quarter: 2008Q4

REPORT INFORMATION
  Report Type: 
  Country: None (occurrence: None)
  Receive Date: 20081124
  Receipt Date: 20081113
  Transmission Date: 20090506
  Serious: Yes (Hospitalization, Other)
  Sender: FDA-Public Use
  Company Number: US-BAXTER-2008BH012541

PATIENT
  Age: 5 Year
  Sex: Female

DRUGS (1)
  1. DIANEAL [Suspect]
     Indication: NEPHROTIC SYNDROME
     Dosage: DOSE UNIT:UNKNOWN
     Route: 033
     Dates: start: 20080601

REACTIONS (1)
  - VOMITING [None]
